FAERS Safety Report 5679255-1 (Version None)
Quarter: 2008Q1

REPORT INFORMATION
  Report Type: 
  Country: None (occurrence: None)
  Receive Date: 20080325
  Receipt Date: 20080318
  Transmission Date: 20080703
  Serious: Yes (Death, Hospitalization)
  Sender: FDA-Public Use
  Company Number: FR-WYE-G01086608

PATIENT
  Sex: Male

DRUGS (8)
  1. PIPERACILLIN SODIUM AND TAZOBACTAM SODIUM [Suspect]
     Dosage: UNKNOWN
     Route: 042
     Dates: start: 20080115, end: 20080121
  2. GENTAMICIN [Suspect]
     Dosage: UNKNOWN
     Dates: start: 20080113, end: 20080114
  3. ELISOR [Concomitant]
     Dosage: UNKNOWN
  4. VANCOMYCIN [Suspect]
     Dosage: UNKNOWN
     Dates: start: 20080119, end: 20080121
  5. SOLUPSAN [Concomitant]
     Dosage: UNKNOWN
  6. TENORMIN [Concomitant]
     Dosage: UNKNOWN
  7. AUGMENTIN '125' [Suspect]
     Indication: FEMUR FRACTURE
     Dosage: 6 G TOTAL DAILY
     Dates: start: 20080112, end: 20080115
  8. TAVANIC [Suspect]
     Dosage: UNKNOWN
     Dates: start: 20080113, end: 20080121

REACTIONS (6)
  - ACUTE RESPIRATORY DISTRESS SYNDROME [None]
  - BLOOD PRESSURE DECREASED [None]
  - CHOLELITHIASIS [None]
  - CYTOLYTIC HEPATITIS [None]
  - HEPATITIS CHOLESTATIC [None]
  - PULMONARY FIBROSIS [None]
